FAERS Safety Report 6728611-9 (Version None)
Quarter: 2010Q2

REPORT INFORMATION
  Report Type: 
  Country: None (occurrence: None)
  Receive Date: 20100517
  Receipt Date: 20100506
  Transmission Date: 20101027
  Serious: Yes (Other)
  Sender: FDA-Public Use
  Company Number: US-WATSON-2010-04160

PATIENT
  Sex: Male

DRUGS (6)
  1. CYCLOBENZAPRINE HYDROCHLORIDE [Suspect]
     Indication: SCIATICA
     Dosage: 1 TABLET BID
     Route: 048
     Dates: start: 20100304, end: 20100306
  2. NAPROXEN [Suspect]
     Indication: DRUG USE FOR UNKNOWN INDICATION
     Dosage: UNK
  3. VITAMIN C                          /00008001/ [Concomitant]
     Indication: DRUG USE FOR UNKNOWN INDICATION
     Dosage: 1 TABLET
     Route: 048
  4. FOLIC ACID [Concomitant]
     Indication: DRUG USE FOR UNKNOWN INDICATION
     Dosage: 1 TABLET DAILY
     Route: 048
  5. SAW PALMETTO                       /00833501/ [Concomitant]
     Indication: DRUG USE FOR UNKNOWN INDICATION
     Dosage: 2 TABLETS DAILY
     Route: 048
  6. MULTI-VITAMINS [Concomitant]
     Indication: DRUG USE FOR UNKNOWN INDICATION
     Dosage: 1 TABLET DAILY
     Route: 048

REACTIONS (9)
  - CATHETER PLACEMENT [None]
  - CONDITION AGGRAVATED [None]
  - DEHYDRATION [None]
  - DYSURIA [None]
  - HAEMORRHOIDS [None]
  - PROSTATOMEGALY [None]
  - URINARY INCONTINENCE [None]
  - URINARY RETENTION [None]
  - URINARY TRACT INFECTION [None]
